FAERS Safety Report 19085209 (Version 3)
Quarter: 2021Q2

REPORT INFORMATION
  Report Type: Spontaneous
  Country: BR (occurrence: BR)
  Receive Date: 20210402
  Receipt Date: 20210519
  Transmission Date: 20210717
  Serious: Yes (Other)
  Sender: FDA-Public Use
  Company Number: BR-ABBVIE-21K-020-3839882-00

PATIENT
  Sex: Male

DRUGS (3)
  1. SKYRIZI [Suspect]
     Active Substance: RISANKIZUMAB-RZAA
     Indication: PSORIASIS
     Dosage: LOADING DOSE ? WEEK 00  UNSPECIFIED DOSE
     Route: 058
     Dates: start: 20201214, end: 20201214
  2. SKYRIZI [Suspect]
     Active Substance: RISANKIZUMAB-RZAA
     Dosage: LOADING DOSE ? WEEK 04
     Route: 058
     Dates: start: 202101, end: 202101
  3. HUMIRA [Suspect]
     Active Substance: ADALIMUMAB
     Indication: PSORIASIS
     Dosage: STARTED A BIT BEFORE 29 MAR 2021
     Route: 058
     Dates: start: 2020

REACTIONS (1)
  - Renal cancer [Unknown]

NARRATIVE: CASE EVENT DATE: 2021
